FAERS Safety Report 21367842 (Version 3)
Quarter: 2022Q4

REPORT INFORMATION
  Report Type: Spontaneous
  Country: US (occurrence: US)
  Receive Date: 20220923
  Receipt Date: 20221128
  Transmission Date: 20230113
  Serious: No
  Sender: FDA-Public Use
  Company Number: US-GSK-US2022133096

PATIENT
  Age: 63 Year
  Sex: Female
  Weight: 65 kg

DRUGS (1)
  1. ADVAIR DISKUS [Suspect]
     Active Substance: FLUTICASONE PROPIONATE\SALMETEROL XINAFOATE
     Indication: Emphysema
     Dosage: 1 PUFF(S), BID,MORNING AND EVENING APPROXIMATELY 12 HOURS APART
     Route: 055
     Dates: start: 2015

REACTIONS (2)
  - COVID-19 [Recovered/Resolved]
  - Coronavirus test positive [Recovered/Resolved]

NARRATIVE: CASE EVENT DATE: 20220906
